FAERS Safety Report 20000039 (Version 6)
Quarter: 2022Q1

REPORT INFORMATION
  Report Type: Report from Study
  Country: IT (occurrence: IT)
  Receive Date: 20211027
  Receipt Date: 20220310
  Transmission Date: 20220424
  Serious: Yes (Other)
  Sender: FDA-Public Use
  Company Number: IT-CELLTRION INC.-2021IT014476

PATIENT

DRUGS (20)
  1. RITUXIMAB [Suspect]
     Active Substance: RITUXIMAB
     Indication: Product used for unknown indication
     Dosage: 649 MG, (ON DAY 1 EVERY CYCLE)
     Route: 042
     Dates: start: 20210525, end: 20210809
  2. RITUXIMAB [Suspect]
     Active Substance: RITUXIMAB
     Dosage: 649 MG, (ON DAY 1 EVERY CYCLE) STOP DATE: 20-OCT-2021 00:00
     Route: 042
  3. RITUXIMAB [Suspect]
     Active Substance: RITUXIMAB
     Dosage: 649 MG, (ON DAY 1 EVERY CYCLE) STOP DATE: 18-NOV-2021
     Route: 042
  4. FONDAPARINUX [Suspect]
     Active Substance: FONDAPARINUX
     Indication: Product used for unknown indication
     Dosage: UNK
     Route: 065
     Dates: start: 20210820, end: 20210913
  5. COPANLISIB [Suspect]
     Active Substance: COPANLISIB
     Indication: Product used for unknown indication
     Dosage: 30 MG (ADMINISTERED ON DAY 1,8,15 EVERY CYCLE); STOP DATE: 27-OCT-2021 00:00
     Route: 042
  6. COPANLISIB [Suspect]
     Active Substance: COPANLISIB
     Dosage: 30 MG (ADMINISTERED ON DAYS 1, 8 AND 15 OF EVERY CYCLE)) STOP DATE: 27-OCT-2021
     Route: 042
  7. COPANLISIB [Suspect]
     Active Substance: COPANLISIB
     Dosage: 45 MG, (ADMINISTERED ON DAYS 1, 8 AND 15 OF EVERY CYCLE)
     Route: 042
     Dates: start: 20210524, end: 20210823
  8. BENDAMUSTINE [Suspect]
     Active Substance: BENDAMUSTINE
     Indication: Product used for unknown indication
     Dosage: 121 MG, (ADMINISTERED DAYS 1,2 EVERY CYCLE)
     Route: 042
     Dates: start: 20210525, end: 20210810
  9. BENDAMUSTINE [Suspect]
     Active Substance: BENDAMUSTINE
     Dosage: 121 MG, (ADMINISTERED DAYS 1,2 EVERY CYCLE) STOP DATE: 19-NOV-2021 00:00
     Route: 042
  10. BENDAMUSTINE [Suspect]
     Active Substance: BENDAMUSTINE
     Dosage: 121 MG, (ADMINISTERED DAYS 1,2 EVERY CYCLE) (STOP DATE: 21-OCT-2021 00:00)
     Route: 042
  11. ACYCLOVIR [Concomitant]
     Active Substance: ACYCLOVIR
     Indication: Product used for unknown indication
     Dosage: UNK
     Route: 065
     Dates: start: 20211118, end: 20211213
  12. ERYTHROPOIETIN [Concomitant]
     Active Substance: ERYTHROPOIETIN
     Indication: Product used for unknown indication
     Dosage: UNK
     Route: 065
     Dates: start: 20210726
  13. CHOLECALCIFEROL [Concomitant]
     Active Substance: CHOLECALCIFEROL
     Indication: Product used for unknown indication
     Dosage: UNK
     Route: 065
  14. LANSOPRAZOLE [Concomitant]
     Active Substance: LANSOPRAZOLE
     Indication: Product used for unknown indication
     Dosage: UNK
     Route: 065
     Dates: start: 20210524
  15. FUROSEMIDE [Concomitant]
     Active Substance: FUROSEMIDE
     Indication: Product used for unknown indication
     Dosage: UNK
     Route: 065
     Dates: start: 20210126
  16. BACTRIM [Concomitant]
     Active Substance: SULFAMETHOXAZOLE\TRIMETHOPRIM
     Indication: Product used for unknown indication
     Dosage: UNK
     Route: 065
     Dates: start: 20210524, end: 20210906
  17. FLUCONAZOLE [Concomitant]
     Active Substance: FLUCONAZOLE
     Indication: Product used for unknown indication
     Dosage: UNK
     Route: 065
     Dates: start: 20210524, end: 20210906
  18. PERINDOPRIL [Concomitant]
     Active Substance: PERINDOPRIL
     Indication: Product used for unknown indication
     Dosage: UNK
     Route: 065
     Dates: start: 20210531
  19. PERINDOPRIL [Concomitant]
     Active Substance: PERINDOPRIL
     Dosage: UNK
     Route: 065
     Dates: start: 20210126
  20. MEDROL [Concomitant]
     Active Substance: METHYLPREDNISOLONE
     Indication: Product used for unknown indication
     Dosage: UNK, QD
     Route: 065
     Dates: start: 20210809

REACTIONS (8)
  - Rash maculo-papular [Recovered/Resolved]
  - Cytomegalovirus infection reactivation [Recovered/Resolved]
  - Cytomegalovirus infection reactivation [Recovered/Resolved]
  - COVID-19 [Unknown]
  - Decreased appetite [Unknown]
  - Rash maculo-papular [Recovered/Resolved]
  - Erythema [Recovered/Resolved]
  - Pruritus [Recovered/Resolved]

NARRATIVE: CASE EVENT DATE: 20210829
